FAERS Safety Report 8241355-X (Version None)
Quarter: 2012Q1

REPORT INFORMATION
  Report Type: 
  Country: None (occurrence: None)
  Receive Date: 20120328
  Receipt Date: 20120321
  Transmission Date: 20120608
  Serious: Yes (Hospitalization, Other)
  Sender: FDA-Public Use
  Company Number: PHHY2012JP009191

PATIENT
  Age: 15 Year
  Sex: Male

DRUGS (7)
  1. CLONAZEPAM [Concomitant]
     Dosage: 2 MG, UNK
  2. LAMOTRGINE [Suspect]
     Indication: CONVULSION
     Dosage: 25 MG, ALTERNATE DAYS
  3. PHENOBARBITAL TAB [Concomitant]
     Dosage: 210 MG, UNK
  4. GABAPENTIN [Concomitant]
     Dosage: 1600 MG, UNK
  5. LAMOTRGINE [Suspect]
     Dosage: 25 MG/DAY
  6. LAMOTRGINE [Suspect]
     Dosage: 50 MG/DAY
  7. ZONISAMIDE [Concomitant]
     Dosage: 450 MG, UNK

REACTIONS (7)
  - PARTIAL SEIZURES [None]
  - TREMOR [None]
  - INSOMNIA [None]
  - MIDDLE INSOMNIA [None]
  - GRAND MAL CONVULSION [None]
  - PARASOMNIA [None]
  - ABNORMAL BEHAVIOUR [None]
